FAERS Safety Report 13762109 (Version 1)
Quarter: 2017Q3

REPORT INFORMATION
  Report Type: Spontaneous
  Country: US (occurrence: US)
  Receive Date: 20170718
  Receipt Date: 20170718
  Transmission Date: 20171127
  Serious: Yes (Other)
  Sender: FDA-Public Use
  Company Number: US-009507513-1707USA002200

PATIENT
  Sex: Female

DRUGS (1)
  1. JANUMET [Suspect]
     Active Substance: METFORMIN HYDROCHLORIDE\SITAGLIPTIN PHOSPHATE
     Dosage: UNK
     Route: 048

REACTIONS (9)
  - Fatigue [Unknown]
  - Depression [Unknown]
  - Osteoarthritis [Unknown]
  - Pain [Unknown]
  - Gait inability [Unknown]
  - Drug administration error [Unknown]
  - Overweight [Unknown]
  - Adverse event [Unknown]
  - Neuropathy peripheral [Unknown]
